FAERS Safety Report 5199222-4 (Version None)
Quarter: 2006Q4

REPORT INFORMATION
  Report Type: 
  Country: None (occurrence: None)
  Receive Date: 20061229
  Receipt Date: 20061215
  Transmission Date: 20070319
  Serious: Yes (Other)
  Sender: FDA-Public Use
  Company Number: JPI-P-000218

PATIENT
  Age: 58 Year
  Sex: Male
  Weight: 90.7194 kg

DRUGS (27)
  1. XYREM (OXYBATE SODIUM) (500 MILLIGRAM/MILLITERS, SOLUTION)  (SODIUM OX [Suspect]
     Indication: FIBROMYALGIA
     Dosage: 6 GM (3 GM, 2 IN 1 D), ORAL
     Route: 048
     Dates: start: 20060301
  2. XYREM (OXYBATE SODIUM) (500 MILLIGRAM/MILLITERS, SOLUTION)  (SODIUM OX [Suspect]
     Indication: INSOMNIA
     Dosage: 6 GM (3 GM, 2 IN 1 D), ORAL
     Route: 048
     Dates: start: 20060301
  3. TRAZODONE HCL [Concomitant]
  4. ASMANEX (MOMETASONE FUROATE) (INHALANT) [Concomitant]
  5. XANAX [Concomitant]
  6. PAXIL [Concomitant]
  7. DILAUDID [Concomitant]
  8. PRILOSEC OTC (OMEPRAZOLE) [Concomitant]
  9. ZOFRAN [Concomitant]
  10. MIRALAX [Concomitant]
  11. AMARYL [Concomitant]
  12. ETODOLAC [Concomitant]
  13. TOPAMAX [Concomitant]
  14. ALTACE [Concomitant]
  15. HYTRIN [Concomitant]
  16. LIPITOR [Concomitant]
  17. LASIX [Concomitant]
  18. HYDROCHLOROTHIAZIDE [Concomitant]
  19. K-DUR 10 [Concomitant]
  20. ASPIRIN [Concomitant]
  21. ALBUTEROL NEBULIZER (SALBUTAMOL) (0.083 PERCENT, INHALANT) [Concomitant]
  22. HYDROXYZINE [Concomitant]
  23. USEPT (USEPT) [Concomitant]
  24. LIDOCAINE VISCOUS (LIDOCAINE HYDROCHLORIDE) [Concomitant]
  25. HYOSCYAMINE (HYOSCYAMINE) [Concomitant]
  26. METOLAZONE [Concomitant]
  27. NYSTATIN CREAM (NYSTATIN) (CREAM) [Concomitant]

REACTIONS (3)
  - FLUID RETENTION [None]
  - HEART RATE DECREASED [None]
  - HYPOTENSION [None]
